FAERS Safety Report 16306567 (Version 2)
Quarter: 2019Q3

REPORT INFORMATION
  Report Type: Spontaneous
  Country: US (occurrence: US)
  Receive Date: 20190513
  Receipt Date: 20190917
  Transmission Date: 20191004
  Serious: Yes (Other)
  Sender: FDA-Public Use
  Company Number: US-ASTRAZENECA-2019SE63759

PATIENT
  Age: 42 Year
  Sex: Female
  Weight: 136.1 kg

DRUGS (19)
  1. CEFALEXIN [Concomitant]
     Active Substance: CEPHALEXIN
  2. PANTOPRAZOLE [Suspect]
     Active Substance: PANTOPRAZOLE
     Indication: GASTROOESOPHAGEAL REFLUX DISEASE
     Dosage: 40 MG DAILY
     Route: 065
     Dates: start: 201101
  3. AZITHROMYCIN ANHYDROUS. [Concomitant]
     Active Substance: AZITHROMYCIN ANHYDROUS
  4. DOXYCYCLINE. [Concomitant]
     Active Substance: DOXYCYCLINE
  5. NAPROXEN. [Concomitant]
     Active Substance: NAPROXEN
  6. PRILOSEC [Suspect]
     Active Substance: OMEPRAZOLE MAGNESIUM
     Indication: GASTROOESOPHAGEAL REFLUX DISEASE
     Route: 048
  7. TRAMADOL. [Concomitant]
     Active Substance: TRAMADOL
  8. ATORVASTATIN [Concomitant]
     Active Substance: ATORVASTATIN
  9. MYLANTA [Concomitant]
     Active Substance: ALUMINUM HYDROXIDE\DIMETHICONE\MAGNESIUM HYDROXIDE
  10. PRILOSEC [Suspect]
     Active Substance: OMEPRAZOLE MAGNESIUM
     Indication: GASTROOESOPHAGEAL REFLUX DISEASE
     Dosage: 20 MG DAILY
     Route: 048
     Dates: start: 2000, end: 2010
  11. SIMVASTATIN. [Concomitant]
     Active Substance: SIMVASTATIN
  12. ZANTAC [Concomitant]
     Active Substance: RANITIDINE HYDROCHLORIDE
  13. CIPROFLOXACIN. [Concomitant]
     Active Substance: CIPROFLOXACIN
  14. ROSUVASTATIN. [Concomitant]
     Active Substance: ROSUVASTATIN
  15. PEPCID [Concomitant]
     Active Substance: FAMOTIDINE
  16. MAALOX ANTACID [Concomitant]
     Active Substance: ALUMINUM HYDROXIDE\DIMETHICONE\MAGNESIUM HYDROXIDE
  17. GAVISCON [Concomitant]
     Active Substance: ALUMINUM HYDROXIDE\MAGNESIUM CARBONATE
  18. KETOROLAC [Concomitant]
     Active Substance: KETOROLAC TROMETHAMINE
  19. TAGAMET [Concomitant]
     Active Substance: CIMETIDINE

REACTIONS (1)
  - Chronic kidney disease [Not Recovered/Not Resolved]

NARRATIVE: CASE EVENT DATE: 2002
